FAERS Safety Report 18923077 (Version 2)
Quarter: 2021Q1

REPORT INFORMATION
  Report Type: Report from Study
  Country: None (occurrence: CO)
  Receive Date: 20210222
  Receipt Date: 20210309
  Transmission Date: 20210420
  Serious: Yes (Other)
  Sender: FDA-Public Use
  Company Number: CO-ABBVIE-21K-036-3784785-00

PATIENT
  Age: 80 Year
  Sex: Female
  Weight: 45 kg

DRUGS (2)
  1. IMBRUVICA [Suspect]
     Active Substance: IBRUTINIB
     Indication: MANTLE CELL LYMPHOMA
     Route: 048
     Dates: start: 20200814, end: 20210208
  2. IMBRUVICA [Suspect]
     Active Substance: IBRUTINIB
     Route: 048
     Dates: start: 20210226

REACTIONS (5)
  - Dysuria [Recovering/Resolving]
  - Unevaluable event [Recovering/Resolving]
  - Abdominal pain upper [Recovering/Resolving]
  - Parkinson^s disease [Recovering/Resolving]
  - Renal disorder [Recovering/Resolving]

NARRATIVE: CASE EVENT DATE: 20210208
